FAERS Safety Report 5340137-6 (Version None)
Quarter: 2007Q2

REPORT INFORMATION
  Report Type: 
  Country: None (occurrence: None)
  Receive Date: 20070523
  Receipt Date: 20070510
  Transmission Date: 20071010
  Serious: Yes (Hospitalization)
  Sender: FDA-Public Use
  Company Number: 2007314935

PATIENT
  Age: 54 Year
  Sex: Female

DRUGS (8)
  1. ROGAINE [Suspect]
     Dosage: 6 SPRAY BUMPS BID (2 IN 1 D), TOPICAL
     Route: 061
     Dates: start: 20070101, end: 20070406
  2. ATEHEXAL (ATENOLOL) [Concomitant]
  3. DRUG, UNSPECIFIED [Concomitant]
  4. ANGELICA [Concomitant]
  5. BIOTIN [Concomitant]
  6. SILICA [Concomitant]
  7. REMIFEMIN PLUS (CIMICIFUGA RACEMOSA ROOT, HERBA HYPERICI) [Concomitant]
  8. TROMCARDIN FORTE (ASPARTATE POTASSIUM, MAGNESIUM ASPARTATE) [Concomitant]

REACTIONS (6)
  - BLOOD PRESSURE SYSTOLIC INCREASED [None]
  - CHEST PAIN [None]
  - DIZZINESS [None]
  - FATIGUE [None]
  - NODAL RHYTHM [None]
  - SUPRAVENTRICULAR TACHYCARDIA [None]
